FAERS Safety Report 22350101 (Version 1)
Quarter: 2023Q2

REPORT INFORMATION
  Report Type: Spontaneous
  Country: US (occurrence: US)
  Receive Date: 20230522
  Receipt Date: 20230522
  Transmission Date: 20230722
  Serious: No
  Sender: FDA-Public Use
  Company Number: US-SA-SAC20230518001175

PATIENT
  Sex: Male

DRUGS (1)
  1. DUPIXENT [Suspect]
     Active Substance: DUPILUMAB
     Dosage: 200 MG OTHER; DOSE OR AMOUNT: 200MG
     Route: 058

REACTIONS (3)
  - Eyelids pruritus [Unknown]
  - Blepharitis [Unknown]
  - Therapeutic product effect incomplete [Unknown]
